FAERS Safety Report 9437544 (Version 1)
Quarter: 2013Q3

REPORT INFORMATION
  Report Type: Report from Study
  Country: US (occurrence: US)
  Receive Date: 20130802
  Receipt Date: 20130802
  Transmission Date: 20140515
  Serious: Yes (Other)
  Sender: FDA-Public Use
  Company Number: US-MYLANLABS-2013S1016531

PATIENT
  Age: 40 Year
  Sex: Female

DRUGS (5)
  1. AMNESTEEM CAPSULES [Suspect]
     Dates: start: 20130524, end: 2013
  2. CLARAVIS [Suspect]
     Dates: start: 20130620
  3. LATISSE [Suspect]
     Indication: GROWTH OF EYELASHES
  4. LEXAPRO [Suspect]
  5. ORAL CONTRACEPTIVE NOS [Concomitant]
     Route: 048

REACTIONS (1)
  - Exposure during pregnancy [Not Recovered/Not Resolved]
